FAERS Safety Report 6017808-1 (Version None)
Quarter: 2008Q4

REPORT INFORMATION
  Report Type: 
  Country: None (occurrence: None)
  Receive Date: 20081223
  Receipt Date: 20081215
  Transmission Date: 20090506
  Serious: Yes (Hospitalization)
  Sender: FDA-Public Use
  Company Number: US-ROCHE-603794

PATIENT
  Age: 59 Year
  Sex: Male

DRUGS (10)
  1. CAPECITABINE [Suspect]
     Dosage: GIVEN EVERY 12 HOURS FOR 14 DAYS.
     Route: 048
  2. BEVACIZUMAB [Suspect]
     Dosage: GIVEN THREE CYCLES OF BEVACIZUMAB PLUS FOLFOX6.
     Route: 065
  3. BEVACIZUMAB [Suspect]
     Dosage: RESTART OF BEVACIZUMAB PLUS FOLFOX6.
     Route: 065
  4. BEVACIZUMAB [Suspect]
     Dosage: ROUTE: INTRAVENOUS.
     Route: 065
  5. FLUOROURACIL [Suspect]
     Dosage: GIVEN 3 CYCLES, PART OF MFOLFOX6 REGIMEN.
     Route: 065
  6. FLUOROURACIL [Suspect]
     Dosage: RESTART OF MFOLFOX6 REGIMEN.
     Route: 065
  7. LEUCOVORIN CALCIUM [Suspect]
     Dosage: GIVEN 3 CYCLES, PART OF MFOLFOX6 REGIMEN.
     Route: 065
  8. LEUCOVORIN CALCIUM [Suspect]
     Dosage: RESTART OF MFOLFOX6 REGIMEN.
     Route: 065
  9. ELOXATIN [Suspect]
     Dosage: GIVEN 3 CYCLES, PART OF MFOLFOX6 REGIMEN.
     Route: 065
  10. ELOXATIN [Suspect]
     Dosage: RESTART OF MFOLFOX6 REGIMEN.
     Route: 065

REACTIONS (5)
  - DISEASE PROGRESSION [None]
  - NEUROPATHY PERIPHERAL [None]
  - PALMAR-PLANTAR ERYTHRODYSAESTHESIA SYNDROME [None]
  - PORTAL HYPERTENSION [None]
  - THROMBOCYTOPENIA [None]
